FAERS Safety Report 16897212 (Version 1)
Quarter: 2019Q4

REPORT INFORMATION
  Report Type: Spontaneous
  Country: ZA (occurrence: ZA)
  Receive Date: 20191009
  Receipt Date: 20191009
  Transmission Date: 20200122
  Serious: Yes (Other)
  Sender: FDA-Public Use
  Company Number: ZA-CIPLA LTD.-2019ZA06451

PATIENT

DRUGS (4)
  1. EPITEC [Suspect]
     Active Substance: LAMOTRIGINE
     Indication: DEPRESSION
     Dosage: 1 DOSAGE FORM, QD
     Route: 065
     Dates: start: 2017
  2. VENLOR [Concomitant]
     Active Substance: VENLAFAXINE HYDROCHLORIDE
     Indication: DEPRESSION
     Dosage: 1 DOSAGE FORM, QD (1 TAB, ONCE DAILY), STRENGTH 150 MG
     Route: 048
  3. VENLOR [Concomitant]
     Active Substance: VENLAFAXINE HYDROCHLORIDE
     Dosage: 1 DOSAGE FORM, QD (1 TAB, ONCE DAILY), STRENGTH 75 MG
     Route: 048
  4. EPITEC [Suspect]
     Active Substance: LAMOTRIGINE
     Indication: ANXIETY

REACTIONS (4)
  - Drug ineffective [Unknown]
  - Skin wrinkling [Recovered/Resolved]
  - Skin disorder [Recovered/Resolved]
  - Acne [Recovered/Resolved]

NARRATIVE: CASE EVENT DATE: 201905
